FAERS Safety Report 12950469 (Version 1)
Quarter: 2016Q4

REPORT INFORMATION
  Report Type: Spontaneous
  Country: FR (occurrence: FR)
  Receive Date: 20161117
  Receipt Date: 20161117
  Transmission Date: 20170207
  Serious: Yes (Hospitalization)
  Sender: FDA-Public Use
  Company Number: ALCN2016FR007506

PATIENT
  Age: 87 Year
  Sex: Female

DRUGS (13)
  1. COSOPT [Suspect]
     Active Substance: DORZOLAMIDE HYDROCHLORIDE\TIMOLOL MALEATE
     Indication: GLAUCOMA SURGERY
     Dosage: 1 GTT, BID
     Route: 047
     Dates: start: 20160820
  2. SECTRAL [Concomitant]
     Active Substance: ACEBUTOLOL HYDROCHLORIDE
     Indication: PRODUCT USED FOR UNKNOWN INDICATION
     Dosage: 0.5 DF, QD
     Route: 065
  3. IOPIDINE [Concomitant]
     Active Substance: APRACLONIDINE HYDROCHLORIDE
     Indication: POSTOPERATIVE CARE
     Dosage: 1 GTT, TID
     Route: 047
  4. OCUFEN [Concomitant]
     Active Substance: FLURBIPROFEN SODIUM
     Indication: POST PROCEDURAL INFECTION
     Dosage: 1 GTT, QID
     Route: 047
  5. DIFFU-K [Concomitant]
     Active Substance: POTASSIUM CHLORIDE
     Indication: POSTOPERATIVE CARE
     Dosage: 1 DF, QD
     Route: 065
  6. AZOPT [Suspect]
     Active Substance: BRINZOLAMIDE
     Indication: GLAUCOMA SURGERY
     Dosage: 1 GTT, BID
     Route: 047
     Dates: start: 20160909
  7. DIAMOX SEQUELS [Suspect]
     Active Substance: ACETAZOLAMIDE
     Indication: GLAUCOMA SURGERY
     Dosage: 0.5 DF, BID
     Route: 048
     Dates: start: 20160818
  8. TOBRADEX [Concomitant]
     Active Substance: DEXAMETHASONE\TOBRAMYCIN
     Indication: POSTOPERATIVE CARE
     Dosage: 1 GTT, TID
     Route: 047
  9. LESCOL [Concomitant]
     Active Substance: FLUVASTATIN SODIUM
     Indication: PRODUCT USED FOR UNKNOWN INDICATION
     Dosage: 1 DF, UNK
     Route: 065
  10. KARDEGIC [Concomitant]
     Active Substance: ASPIRIN LYSINE
     Indication: PRODUCT USED FOR UNKNOWN INDICATION
     Dosage: 1 DF, QD
     Route: 065
  11. ATROPINE. [Concomitant]
     Active Substance: ATROPINE
     Indication: POSTOPERATIVE CARE
     Dosage: 1 GTT, TID
     Route: 047
  12. LACRIFLUID [Concomitant]
     Active Substance: CARBOMER
     Indication: POSTOPERATIVE CARE
     Dosage: 1 DF, QD
     Route: 047
  13. DORZOLAMIDE EG [Suspect]
     Active Substance: DORZOLAMIDE HYDROCHLORIDE
     Indication: GLAUCOMA SURGERY
     Dosage: 1 GTT, BID
     Route: 047
     Dates: start: 20160818, end: 20160819

REACTIONS (2)
  - Dyspnoea exertional [Not Recovered/Not Resolved]
  - Restrictive pulmonary disease [None]

NARRATIVE: CASE EVENT DATE: 20160820
